FAERS Safety Report 21224802 (Version 1)
Quarter: 2022Q3

REPORT INFORMATION
  Report Type: Spontaneous
  Country: US (occurrence: US)
  Receive Date: 20220817
  Receipt Date: 20220817
  Transmission Date: 20221027
  Serious: Yes (Hospitalization, Other)
  Sender: FDA-Public Use
  Company Number: US-OTSUKA-2021_037053

PATIENT
  Sex: Female

DRUGS (1)
  1. ABILIFY MAINTENA [Suspect]
     Active Substance: ARIPIPRAZOLE
     Indication: Bipolar I disorder
     Dosage: 600MG AND 25MG
     Route: 065
     Dates: start: 20211008

REACTIONS (8)
  - Suicide attempt [Unknown]
  - Ataxia [Unknown]
  - Alexithymia [Unknown]
  - Adverse event [Unknown]
  - Mania [Unknown]
  - Aggression [Unknown]
  - Dyskinesia [Unknown]
  - Incorrect dose administered [Unknown]
